FAERS Safety Report 17074121 (Version 1)
Quarter: 2019Q4

REPORT INFORMATION
  Report Type: Spontaneous
  Country: CA (occurrence: CA)
  Receive Date: 20191126
  Receipt Date: 20191126
  Transmission Date: 20200122
  Serious: Yes (Hospitalization)
  Sender: FDA-Public Use
  Company Number: CA-BAXTER-2019BAX023396

PATIENT
  Sex: Female

DRUGS (1)
  1. BUPIVACAINE HYDROCHLORIDE 7.5 MG/ML [Suspect]
     Active Substance: BUPIVACAINE HYDROCHLORIDE
     Indication: CAESAREAN SECTION
     Dosage: 0.75 % 7.5 MG/ML 2 ML/AMPOULE
     Route: 065
     Dates: start: 20191113, end: 201911

REACTIONS (2)
  - Exposure during pregnancy [Unknown]
  - Drug ineffective [Unknown]

NARRATIVE: CASE EVENT DATE: 20191113
